FAERS Safety Report 8256599-0 (Version None)
Quarter: 2012Q2

REPORT INFORMATION
  Report Type: 
  Country: None (occurrence: None)
  Receive Date: 20120403
  Receipt Date: 20120326
  Transmission Date: 20120825
  Serious: Yes (Hospitalization)
  Sender: FDA-Public Use
  Company Number: JP-EISAI INC-E7389-01821-SPO-JP

PATIENT
  Age: 60 Year
  Sex: Female
  Weight: 81 kg

DRUGS (1)
  1. HALAVEN [Suspect]
     Indication: BREAST CANCER RECURRENT
     Route: 041
     Dates: start: 20111212

REACTIONS (4)
  - PYREXIA [None]
  - MYOCARDIAL INFARCTION [None]
  - URINARY TRACT INFECTION BACTERIAL [None]
  - NEOPLASM MALIGNANT [None]
